FAERS Safety Report 14788870 (Version 1)
Quarter: 2018Q2

REPORT INFORMATION
  Report Type: Spontaneous
  Country: US (occurrence: US)
  Receive Date: 20180423
  Receipt Date: 20180423
  Transmission Date: 20180711
  Serious: No
  Sender: FDA-Public Use
  Company Number: US-009507513-1804USA004686

PATIENT
  Sex: Female
  Weight: 85.71 kg

DRUGS (1)
  1. NEXPLANON [Suspect]
     Active Substance: ETONOGESTREL
     Indication: CONTRACEPTION
     Dosage: 1 DF, EVERY 3 YEARS
     Route: 059
     Dates: start: 2017

REACTIONS (5)
  - Implant site discolouration [Unknown]
  - Implant site swelling [Unknown]
  - Metrorrhagia [Unknown]
  - Implant site pain [Unknown]
  - Pain in extremity [Not Recovered/Not Resolved]
